FAERS Safety Report 7875654-8 (Version None)
Quarter: 2011Q4

REPORT INFORMATION
  Report Type: 
  Country: None (occurrence: None)
  Receive Date: 20111031
  Receipt Date: 20111024
  Transmission Date: 20120403
  Serious: Yes (Other)
  Sender: FDA-Public Use
  Company Number: SE-AMGEN-SWESP2011047764

PATIENT
  Sex: Male
  Weight: 67 kg

DRUGS (4)
  1. HORMONES [Concomitant]
     Indication: ENDOCRINE DISORDER
  2. NPLATE [Suspect]
     Indication: IDIOPATHIC THROMBOCYTOPENIC PURPURA
     Dosage: 1 MUG/KG, UNK
     Dates: start: 20110104, end: 20110823
  3. GAMMAGLOBULIN                      /00025201/ [Concomitant]
  4. NPLATE [Suspect]
     Dosage: 4 MUG/KG, UNK

REACTIONS (2)
  - CHRONIC LYMPHOCYTIC LEUKAEMIA [None]
  - THERAPEUTIC RESPONSE DECREASED [None]
